FAERS Safety Report 18433005 (Version 1)
Quarter: 2020Q4

REPORT INFORMATION
  Report Type: Spontaneous
  Country: DE (occurrence: DE)
  Receive Date: 20201027
  Receipt Date: 20201027
  Transmission Date: 20210114
  Serious: Yes (Other)
  Sender: FDA-Public Use
  Company Number: DE-LUPIN PHARMACEUTICALS INC.-2020-05562

PATIENT
  Age: 33 Year
  Sex: Female

DRUGS (5)
  1. NICOTINE. [Suspect]
     Active Substance: NICOTINE
     Indication: PRODUCT USED FOR UNKNOWN INDICATION
     Dosage: UNK
     Route: 065
  2. LORAZEPAM. [Suspect]
     Active Substance: LORAZEPAM
     Indication: BORDERLINE PERSONALITY DISORDER
     Dosage: UNK
     Route: 065
  3. PREGABALIN CAPSULES [Suspect]
     Active Substance: PREGABALIN
     Indication: ANXIETY
     Dosage: 25 MILLIGRAM, UNK
     Route: 048
  4. LORAZEPAM. [Suspect]
     Active Substance: LORAZEPAM
     Dosage: TAKING BETWEEN 3 AND 6  MG PER DAY
     Route: 065
  5. PREGABALIN CAPSULES [Suspect]
     Active Substance: PREGABALIN
     Dosage: 3000 MILLIGRAM, QD ((UP TO 6 DAILY INTAKES WITH VARIOUS DOSES RANGING FROM 25 MG TO 300 MG)
     Route: 048

REACTIONS (1)
  - Drug dependence [Unknown]
